FAERS Safety Report 9412327 (Version 2)
Quarter: 2013Q2

REPORT INFORMATION
  Report Type: Spontaneous
  Country: US (occurrence: US)
  Receive Date: 20130514
  Receipt Date: 20130619
  Transmission Date: 20140414
  Serious: Yes (Hospitalization, Other)
  Sender: FDA-Public Use
  Company Number: JPI-P-030030

PATIENT
  Age: 33 Year
  Sex: Female
  Weight: 65.77 kg

DRUGS (4)
  1. XYREM (500 MG/ML SOLUTION)(SODIUM OXYBATE) [Suspect]
     Indication: NARCOLEPSY
     Dosage: 4.5 GM (2.25 GM,2 IN 1 D), ORAL
     Route: 048
     Dates: start: 201208
  2. XYREM (500 MG/ML SOLUTION)(SODIUM OXYBATE) [Suspect]
     Indication: SOMNOLENCE
     Dosage: 4.5 GM (2.25 GM,2 IN 1 D), ORAL
     Route: 048
     Dates: start: 201208
  3. TOPAMAX (TOPIRAMATE) [Suspect]
     Indication: PRODUCT USED FOR UNKNOWN INDICATION
     Dates: start: 2013, end: 2013
  4. UNSPECIFIED MEDICATION [Concomitant]

REACTIONS (10)
  - Behcet^s syndrome [None]
  - Ulcer [None]
  - Blood pressure increased [None]
  - Eye disorder [None]
  - Systemic lupus erythematosus [None]
  - Chest pain [None]
  - Hypotension [None]
  - Syncope [None]
  - Nausea [None]
  - Blood pressure fluctuation [None]
